FAERS Safety Report 8589655-8 (Version None)
Quarter: 2012Q3

REPORT INFORMATION
  Report Type: 
  Country: None (occurrence: None)
  Receive Date: 20120813
  Receipt Date: 20120803
  Transmission Date: 20120928
  Serious: Yes (Hospitalization)
  Sender: FDA-Public Use
  Company Number: FR-ROCHE-1081462

PATIENT
  Sex: Female
  Weight: 71.4 kg

DRUGS (10)
  1. THYMOGLOBULIN [Concomitant]
     Route: 042
     Dates: start: 20120612
  2. CELLCEPT [Suspect]
     Indication: RENAL TRANSPLANT
     Route: 048
     Dates: start: 20120609
  3. CELLCEPT [Suspect]
  4. TACROLIMUS [Suspect]
     Indication: TRANSPLANT REJECTION
     Route: 048
     Dates: start: 20120710
  5. CELLCEPT [Suspect]
  6. PREDNISONE TAB [Suspect]
     Indication: TRANSPLANT REJECTION
     Route: 048
     Dates: start: 20120610
  7. CELLCEPT [Suspect]
     Route: 048
     Dates: start: 20120709
  8. EVEROLIMUS [Suspect]
     Indication: TRANSPLANT REJECTION
     Route: 048
     Dates: start: 20120614, end: 20120713
  9. PREDNISONE TAB [Suspect]
     Route: 002
     Dates: start: 20120610
  10. IMMUNE GLOBULIN NOS [Suspect]
     Indication: TRANSPLANT REJECTION
     Dosage: 5 MG/ML
     Route: 042
     Dates: start: 20120612

REACTIONS (5)
  - URINOMA [None]
  - ANAEMIA [None]
  - IMPAIRED HEALING [None]
  - RENAL ARTERY STENOSIS [None]
  - COMPLICATIONS OF TRANSPLANTED KIDNEY [None]
